FAERS Safety Report 9292967 (Version 1)
Quarter: 2013Q2

REPORT INFORMATION
  Report Type: Spontaneous
  Country: DE (occurrence: DE)
  Receive Date: 20130516
  Receipt Date: 20130516
  Transmission Date: 20140414
  Serious: Yes (Hospitalization, Other)
  Sender: FDA-Public Use
  Company Number: DE-PFIZER INC-2013150660

PATIENT
  Age: 34 Year
  Sex: Female
  Weight: 58 kg

DRUGS (3)
  1. RAMIPRIL [Suspect]
     Indication: HYPERTENSION
     Dosage: 5 MG, DAILY, 0. - 8.6. GESTATIONAL WEEK
     Route: 048
     Dates: start: 20111227, end: 20120227
  2. L-THYROXIN [Concomitant]
     Indication: HYPOTHYROIDISM
     Dosage: 50 UG, DAILY, 0. - 40.5. GESTATIONAL WEEK
     Route: 048
     Dates: start: 20111227, end: 20121007
  3. VELNATAL PLUS [Concomitant]
     Indication: PROPHYLAXIS OF NEURAL TUBE DEFECT
     Dosage: 0.4 MG, DAILY, 7.3. - 40.5. GESTATIONAL WEEK
     Route: 048
     Dates: start: 20120217, end: 20121007

REACTIONS (1)
  - Obstructed labour [Recovered/Resolved]
